FAERS Safety Report 8573543-7 (Version None)
Quarter: 2012Q2

REPORT INFORMATION
  Report Type: 
  Country: None (occurrence: None)
  Receive Date: 20120423
  Receipt Date: 20100216
  Transmission Date: 20120825
  Serious: Yes (Other)
  Sender: FDA-Public Use
  Company Number: PHEH2009US17469

PATIENT
  Age: 64 Year
  Sex: Female

DRUGS (7)
  1. EXJADE [Suspect]
     Indication: SERUM FERRITIN INCREASED
     Dosage: 1500 MG, QD, ORAL
     Route: 048
     Dates: start: 20090401, end: 20090501
  2. CALCIUM W/VITAMIN D NOS (CALCIUM, VITAMIN D NOS) [Concomitant]
  3. VITAMIN D [Concomitant]
  4. NEXIUM [Concomitant]
  5. SYNTHROID [Concomitant]
  6. VALTREX [Concomitant]
  7. VITAMIN B12 [Concomitant]

REACTIONS (5)
  - FATIGUE [None]
  - HEADACHE [None]
  - SERUM FERRITIN INCREASED [None]
  - DIARRHOEA [None]
  - PHLEBOTOMY [None]
